FAERS Safety Report 5662423-2 (Version None)
Quarter: 2008Q1

REPORT INFORMATION
  Report Type: 
  Country: None (occurrence: None)
  Receive Date: 20080313
  Receipt Date: 20080306
  Transmission Date: 20080703
  Serious: Yes (Hospitalization, Other)
  Sender: FDA-Public Use
  Company Number: JP-BAYER-200711123BYL

PATIENT
  Age: 76 Year
  Sex: Female
  Weight: 67 kg

DRUGS (16)
  1. SORAFENIB OR PLACEBO [Suspect]
     Indication: HEPATIC NEOPLASM MALIGNANT
     Dosage: TOTAL DAILY DOSE: 800 MG  UNIT DOSE: 200 MG
     Route: 048
     Dates: start: 20070829, end: 20071226
  2. URSO 250 [Concomitant]
     Indication: HEPATIC FUNCTION ABNORMAL
     Dosage: TOTAL DAILY DOSE: 300 MG  UNIT DOSE: 100 MG
     Route: 048
  3. EPL [Concomitant]
     Indication: HEPATIC FUNCTION ABNORMAL
     Dosage: TOTAL DAILY DOSE: 750 MG  UNIT DOSE: 250 MG
     Route: 048
  4. PROMAC [Concomitant]
     Indication: GASTRITIS
     Dosage: TOTAL DAILY DOSE: 150 MG  UNIT DOSE: 75 MG
     Route: 048
  5. OMEPRAL [Concomitant]
     Indication: GASTRITIS
     Dosage: TOTAL DAILY DOSE: 10 MG  UNIT DOSE: 10 MG
     Route: 048
  6. ALLOPURINOL [Concomitant]
     Indication: HYPERURICAEMIA
     Dosage: TOTAL DAILY DOSE: 100 MG  UNIT DOSE: 100 MG
     Route: 048
     Dates: start: 20070912
  7. ADALAT [Concomitant]
     Indication: HYPERTENSION
     Dosage: TOTAL DAILY DOSE: 40 MG  UNIT DOSE: 20 MG
     Route: 048
     Dates: start: 20070829
  8. OLMESARTAN MEDOXOMIL [Concomitant]
     Indication: HYPERTENSION
     Dosage: TOTAL DAILY DOSE: 20 MG  UNIT DOSE: 20 MG
     Route: 048
     Dates: start: 20070912, end: 20071120
  9. MICARDIS [Concomitant]
     Indication: HYPERTENSION
     Dosage: TOTAL DAILY DOSE: 40 MG  UNIT DOSE: 40 MG
     Route: 048
     Dates: start: 20071121
  10. UREPEARL [Concomitant]
     Indication: PALMAR-PLANTAR ERYTHRODYSAESTHESIA SYNDROME
     Route: 062
     Dates: start: 20071107
  11. CRAVIT [Concomitant]
     Indication: ASCITES INFECTION
     Dosage: TOTAL DAILY DOSE: 300 MG  UNIT DOSE: 100 MG
     Route: 048
     Dates: start: 20071219, end: 20071226
  12. LOCOID [Concomitant]
     Indication: TINEA INFECTION
     Route: 062
     Dates: start: 20071219
  13. NIZORAL [Concomitant]
     Indication: TINEA INFECTION
     Route: 062
     Dates: start: 20071219
  14. ALBUMIN (HUMAN) [Concomitant]
     Indication: OEDEMA
     Dosage: UNIT DOSE: 50 ML
     Route: 042
     Dates: start: 20071219, end: 20071221
  15. LASIX [Concomitant]
     Indication: ASCITES
     Dosage: UNIT DOSE: 20 MG
     Route: 042
     Dates: start: 20071219, end: 20071221
  16. NEO-MINOPHAGEN C [Concomitant]
     Indication: HEPATIC FUNCTION ABNORMAL
     Dosage: UNIT DOSE: 20 ML
     Route: 042
     Dates: start: 20071226

REACTIONS (3)
  - ANAEMIA [None]
  - ASCITES [None]
  - OEDEMA PERIPHERAL [None]
